FAERS Safety Report 25450688 (Version 2)
Quarter: 2025Q2

REPORT INFORMATION
  Report Type: Spontaneous
  Country: US (occurrence: US)
  Receive Date: 20250618
  Receipt Date: 20250618
  Transmission Date: 20250717
  Serious: Yes (Life-Threatening, Other)
  Sender: NOVARTIS
  Company Number: US-002147023-NVSC2025US096492

PATIENT
  Sex: Male

DRUGS (3)
  1. TEGRETOL XR [Suspect]
     Active Substance: CARBAMAZEPINE
     Indication: Product used for unknown indication
     Dosage: 400 MG, QD
     Route: 065
     Dates: start: 1996
  2. TEGRETOL XR [Suspect]
     Active Substance: CARBAMAZEPINE
     Dosage: 1000 MG, QD
     Route: 065
  3. CARBAMAZEPINE [Suspect]
     Active Substance: CARBAMAZEPINE
     Indication: Product used for unknown indication
     Route: 065

REACTIONS (3)
  - Generalised tonic-clonic seizure [Unknown]
  - Seizure [Unknown]
  - Product availability issue [Unknown]
